FAERS Safety Report 8136056-2 (Version None)
Quarter: 2012Q1

REPORT INFORMATION
  Report Type: 
  Country: None (occurrence: None)
  Receive Date: 20120214
  Receipt Date: 20120130
  Transmission Date: 20120608
  Serious: Yes (Hospitalization)
  Sender: FDA-Public Use
  Company Number: DK-WATSON-2012-01903

PATIENT

DRUGS (2)
  1. METFORMIN HCL [Suspect]
     Indication: TYPE 2 DIABETES MELLITUS
     Route: 065
  2. METFORMIN HCL [Suspect]
     Indication: RENAL FAILURE CHRONIC

REACTIONS (2)
  - GASTROINTESTINAL HAEMORRHAGE [None]
  - LACTIC ACIDOSIS [None]
